FAERS Safety Report 11046520 (Version 1)
Quarter: 2015Q2

REPORT INFORMATION
  Report Type: Spontaneous
  Country: PT (occurrence: PT)
  Receive Date: 20150420
  Receipt Date: 20150420
  Transmission Date: 20150821
  Serious: Yes (Other)
  Sender: FDA-Public Use
  Company Number: PT-BEH-2015050344

PATIENT
  Age: 48 Year
  Sex: Male

DRUGS (1)
  1. INTRAVENOUS HUMAN IMMUNOGLOBULIN [Suspect]
     Active Substance: HUMAN IMMUNOGLOBULIN G
     Indication: MULTIPLE SCLEROSIS

REACTIONS (4)
  - Dermatitis bullous [Recovered/Resolved with Sequelae]
  - Urticaria [Recovered/Resolved]
  - Erythema [Recovered/Resolved]
  - Pemphigoid [Recovered/Resolved with Sequelae]
